FAERS Safety Report 18273763 (Version 1)
Quarter: 2020Q3

REPORT INFORMATION
  Report Type: Spontaneous
  Country: BE (occurrence: BE)
  Receive Date: 20200916
  Receipt Date: 20200916
  Transmission Date: 20201103
  Serious: Yes (Other)
  Sender: FDA-Public Use
  Company Number: BE-MYLANLABS-2020M1078143

PATIENT
  Sex: Female
  Weight: 45 kg

DRUGS (3)
  1. TRADONAL ODIS 50 MG [Suspect]
     Active Substance: TRAMADOL HYDROCHLORIDE
     Indication: PRODUCT USED FOR UNKNOWN INDICATION
     Dosage: 2 DOSAGE FORM
     Dates: start: 20200708
  2. DICLOFENAC EG                      /00372302/ [Suspect]
     Active Substance: DICLOFENAC SODIUM
     Indication: PRODUCT USED FOR UNKNOWN INDICATION
     Dosage: 2 DOSAGE FORM
     Dates: start: 20200708
  3. AMOXICILLINE EG [Suspect]
     Active Substance: AMOXICILLIN
     Indication: PRODUCT USED FOR UNKNOWN INDICATION
     Dosage: 2 DOSAGE FORM
     Dates: start: 20200708

REACTIONS (5)
  - Nausea [Unknown]
  - Hyperhidrosis [Unknown]
  - Vertigo [Unknown]
  - Vomiting [Unknown]
  - Pallor [Unknown]
